FAERS Safety Report 5198896-1 (Version None)
Quarter: 2006Q4

REPORT INFORMATION
  Report Type: 
  Country: None (occurrence: None)
  Receive Date: 20060921
  Receipt Date: 20051222
  Transmission Date: 20070319
  Serious: Yes (Disabling, Other)
  Sender: FDA-Public Use
  Company Number: 2005172464

PATIENT
  Age: 46 Year
  Sex: Female
  Weight: 97.977 kg

DRUGS (5)
  1. ZYRTEC [Suspect]
     Indication: SEASONAL ALLERGY
     Dosage: 10 MG, PRN
  2. TOPROL-XL [Concomitant]
  3. CARDIZEM [Concomitant]
  4. PROTONIX [Concomitant]
  5. HYDROCHLOROTHIAZIDE [Concomitant]

REACTIONS (1)
  - ACCIDENT AT WORK [None]
